FAERS Safety Report 7095612-3 (Version None)
Quarter: 2010Q4

REPORT INFORMATION
  Report Type: 
  Country: None (occurrence: None)
  Receive Date: 20101111
  Receipt Date: 20101105
  Transmission Date: 20110411
  Serious: Yes (Life-Threatening, Other)
  Sender: FDA-Public Use
  Company Number: US-ELI_LILLY_AND_COMPANY-US201011002160

PATIENT
  Age: 65 Year
  Sex: Female
  Weight: 65.986 kg

DRUGS (9)
  1. HUMULIN N [Suspect]
     Indication: DIABETES MELLITUS
     Dosage: 39 IU, 2/D
     Route: 058
     Dates: start: 19980101
  2. NEXIUM [Concomitant]
     Indication: PROPHYLAXIS AGAINST GASTROINTESTINAL ULCER
     Dates: start: 20090408
  3. LEVOTHYROXINE SODIUM [Concomitant]
  4. METFORMIN HCL [Concomitant]
     Indication: DIABETES MELLITUS
     Dosage: 850 MG, DAILY (1/D)
     Route: 048
     Dates: start: 19970101
  5. ASPIRIN [Concomitant]
     Indication: PROPHYLAXIS
  6. LOSARTAN POTASSIUM [Concomitant]
     Indication: HYPERTENSION
     Dosage: UNK, UNK
     Dates: start: 20091110
  7. ENALAPRIL MALEATE [Concomitant]
     Indication: HYPERTENSION
     Dosage: UNK, UNK
     Dates: start: 20091110
  8. VERAPAMIL HYDROCHLORIDE [Concomitant]
     Indication: HYPERTENSION
     Dosage: UNK, UNK
     Dates: start: 20091110
  9. ALUMINUM HYDROXIDE GEL [Concomitant]
     Dates: start: 20091110

REACTIONS (2)
  - HYPERTENSION [None]
  - HYPOGLYCAEMIA [None]
